FAERS Safety Report 4504004-X (Version None)
Quarter: 2004Q4

REPORT INFORMATION
  Report Type: 
  Country: None (occurrence: None)
  Receive Date: 20041115
  Receipt Date: 20041103
  Transmission Date: 20050328
  Serious: Yes (Death)
  Sender: FDA-Public Use
  Company Number: 2004S1002854

PATIENT
  Age: 83 Year
  Sex: Female

DRUGS (10)
  1. CLOZAPINE [Suspect]
     Indication: SCHIZOPHRENIA
     Dosage: 50MG, TID, ORAL
     Route: 048
     Dates: start: 20030604
  2. CLOZAPINE [Suspect]
     Indication: SCHIZOPHRENIA
     Dosage: 100MG Q HS , ORAL
     Route: 048
     Dates: start: 20030604
  3. ALBUTEROL [Concomitant]
  4. DOCUSATE [Concomitant]
  5. FUROSEMIDE [Concomitant]
  6. GENTAMICIN [Concomitant]
  7. OSCAL [Concomitant]
  8. CEFTRIAXONE SODIUM [Concomitant]
  9. SALMETEROL [Concomitant]
  10. TRIMETHOPRIM [Concomitant]

REACTIONS (2)
  - APNOEA [None]
  - PNEUMONIA [None]
